FAERS Safety Report 15742068 (Version 2)
Quarter: 2024Q4

REPORT INFORMATION
  Report Type: Report from Study
  Country: US (occurrence: US)
  Receive Date: 20181219
  Receipt Date: 20241115
  Transmission Date: 20250115
  Serious: Yes (Other)
  Sender: TAKEDA
  Company Number: US-TAKEDA-2018TUS035933

PATIENT
  Sex: Female
  Weight: 58.957 kg

DRUGS (7)
  1. VORTIOXETINE [Suspect]
     Active Substance: VORTIOXETINE
     Indication: Depression
     Dosage: 5 MILLIGRAM, QD
     Dates: start: 201808
  2. VORTIOXETINE [Suspect]
     Active Substance: VORTIOXETINE
     Dosage: 10 MILLIGRAM, QD
  3. XANAX [Concomitant]
     Active Substance: ALPRAZOLAM
     Dosage: 0.5 MILLIGRAM
  4. VYVANSE [Concomitant]
     Active Substance: LISDEXAMFETAMINE DIMESYLATE
     Indication: Attention deficit hyperactivity disorder
     Dosage: 50 MILLIGRAM
  5. TRESIBA [Concomitant]
     Active Substance: INSULIN DEGLUDEC
     Indication: Diabetes mellitus
     Dosage: UNK
  6. FIASP [Concomitant]
     Active Substance: INSULIN ASPART
     Indication: Diabetes mellitus
     Dosage: UNK
  7. LORYNA [Concomitant]
     Active Substance: DROSPIRENONE\ETHINYL ESTRADIOL
     Indication: Contraception
     Dosage: UNK

REACTIONS (5)
  - Hallucination, visual [Not Recovered/Not Resolved]
  - Suicidal ideation [Unknown]
  - Hypoaesthesia [Not Recovered/Not Resolved]
  - Product use issue [Unknown]
  - Abnormal dreams [Not Recovered/Not Resolved]
